FAERS Safety Report 5764901-4 (Version None)
Quarter: 2008Q2

REPORT INFORMATION
  Report Type: 
  Country: None (occurrence: None)
  Receive Date: 20080611
  Receipt Date: 20080609
  Transmission Date: 20081010
  Serious: Yes (Disabling)
  Sender: FDA-Public Use
  Company Number: A0731923A

PATIENT
  Age: 35 Year
  Sex: Female

DRUGS (2)
  1. ALLI [Suspect]
     Route: 048
  2. MULTI-VITAMIN [Concomitant]

REACTIONS (7)
  - ABDOMINAL PAIN UPPER [None]
  - DYSGEUSIA [None]
  - DYSPEPSIA [None]
  - FOOD POISONING [None]
  - PANCREATIC ENZYMES INCREASED [None]
  - SALIVA ALTERED [None]
  - VOMITING [None]
